FAERS Safety Report 8382734 (Version 3)
Quarter: 2013Q2

REPORT INFORMATION
  Report Type: Report from Study
  Country: CA (occurrence: CA)
  Receive Date: 20120201
  Receipt Date: 20130515
  Transmission Date: 20140414
  Serious: No
  Sender: FDA-Public Use
  Company Number: PHHY2012CA007819

PATIENT
  Sex: Female

DRUGS (4)
  1. ACLASTA [Suspect]
     Indication: OSTEOPOROSIS
     Dosage: UNK
     Route: 042
     Dates: start: 20100609
  2. ACLASTA [Suspect]
     Dosage: UNK
     Route: 042
     Dates: start: 20120126
  3. CALCIUM [Concomitant]
  4. MAGNESIUM [Concomitant]

REACTIONS (2)
  - Diverticulitis [Unknown]
  - Diarrhoea [Unknown]
